FAERS Safety Report 7723745-4 (Version None)
Quarter: 2011Q3

REPORT INFORMATION
  Report Type: 
  Country: None (occurrence: None)
  Receive Date: 20110901
  Receipt Date: 20110823
  Transmission Date: 20111222
  Serious: Yes (Other)
  Sender: FDA-Public Use
  Company Number: US-ELI_LILLY_AND_COMPANY-US201108007420

PATIENT
  Age: 75 Year
  Sex: Male

DRUGS (4)
  1. CALCIUM CHANNEL BLOCKERS [Concomitant]
     Dosage: UNK, UNKNOWN
     Route: 065
  2. STATIN                             /00084401/ [Concomitant]
     Dosage: UNK, UNKNOWN
  3. EFFIENT [Suspect]
     Indication: STENT PLACEMENT
     Dosage: 60 MG, LOADING DOSE
     Route: 065
  4. EFFIENT [Suspect]
     Dosage: 10 MG, QD

REACTIONS (1)
  - ISCHAEMIC STROKE [None]
